FAERS Safety Report 16242384 (Version 1)
Quarter: 2019Q2

REPORT INFORMATION
  Report Type: Spontaneous
  Country: CA (occurrence: CA)
  Receive Date: 20190426
  Receipt Date: 20190426
  Transmission Date: 20190711
  Serious: Yes (Other)
  Sender: FDA-Public Use
  Company Number: CA-ROCHE-2307683

PATIENT
  Age: 88 Year
  Sex: Female

DRUGS (1)
  1. RANIBIZUMAB. [Suspect]
     Active Substance: RANIBIZUMAB
     Indication: NEOVASCULAR AGE-RELATED MACULAR DEGENERATION
     Route: 031

REACTIONS (6)
  - Conjunctival hyperaemia [Recovered/Resolved]
  - Vitritis [Recovered/Resolved]
  - Endophthalmitis [Recovered/Resolved]
  - Hypopyon [Recovered/Resolved]
  - Eye pain [Recovered/Resolved]
  - Blindness unilateral [Recovered/Resolved]
